FAERS Safety Report 9372815 (Version 1)
Quarter: 2013Q2

REPORT INFORMATION
  Report Type: Spontaneous
  Country: FR (occurrence: FR)
  Receive Date: 20130627
  Receipt Date: 20130627
  Transmission Date: 20140414
  Serious: Yes (Hospitalization, Other)
  Sender: FDA-Public Use
  Company Number: FR-ABBOTT-13P-056-1108198-00

PATIENT
  Age: 49 Year
  Sex: Male

DRUGS (6)
  1. CYCLOSPORIN [Suspect]
     Indication: IMMUNOSUPPRESSANT DRUG THERAPY
     Route: 048
  2. CYCLOSPORIN [Suspect]
     Route: 042
  3. CORTICOSTEROIDS [Suspect]
     Indication: IMMUNOSUPPRESSANT DRUG THERAPY
  4. AZATHIOPRINE [Suspect]
     Indication: IMMUNOSUPPRESSANT DRUG THERAPY
  5. AZATHIOPRINE [Suspect]
  6. INFLIXIMAB [Suspect]
     Indication: IMMUNOSUPPRESSANT DRUG THERAPY

REACTIONS (3)
  - Human herpesvirus 8 infection [Unknown]
  - Cytomegalovirus infection [Unknown]
  - Kaposi^s sarcoma [Unknown]
